FAERS Safety Report 15137758 (Version 1)
Quarter: 2018Q3

REPORT INFORMATION
  Report Type: Spontaneous
  Country: US (occurrence: US)
  Receive Date: 20180712
  Receipt Date: 20180712
  Transmission Date: 20181010
  Serious: Yes (Hospitalization, Other)
  Sender: FDA-Public Use
  Company Number: US-TOLMAR, INC.-TOLG20180374

PATIENT
  Age: 74 Year
  Sex: Female

DRUGS (4)
  1. LEVOFLOXACIN. [Concomitant]
     Active Substance: LEVOFLOXACIN
     Indication: PNEUMONIA
     Dosage: UNKNOWN
     Route: 065
  2. PREDNISONE. [Concomitant]
     Active Substance: PREDNISONE
     Indication: RHEUMATOID ARTHRITIS
     Dosage: UNKNOWN
     Route: 065
  3. METRONIDAZOLE. [Suspect]
     Active Substance: METRONIDAZOLE
     Indication: PNEUMONIA
     Dosage: UNKNOWN
     Route: 065
  4. METHOTREXATE. [Concomitant]
     Active Substance: METHOTREXATE
     Indication: RHEUMATOID ARTHRITIS
     Dosage: UNKNOWN
     Route: 065

REACTIONS (11)
  - Ataxia [Unknown]
  - Toxic encephalopathy [Recovered/Resolved]
  - Eye movement disorder [Recovering/Resolving]
  - Dyscalculia [Unknown]
  - Paraesthesia [Not Recovered/Not Resolved]
  - Mental status changes [Unknown]
  - Disturbance in attention [Unknown]
  - Asthenia [Unknown]
  - Dysarthria [Recovered/Resolved]
  - Muscular weakness [Unknown]
  - Memory impairment [Unknown]
